FAERS Safety Report 4311122-8 (Version None)
Quarter: 2004Q1

REPORT INFORMATION
  Report Type: 
  Country: None (occurrence: None)
  Receive Date: 20040302
  Receipt Date: 20040218
  Transmission Date: 20041129
  Serious: Yes (Hospitalization, Other)
  Sender: FDA-Public Use
  Company Number: 2003003490

PATIENT
  Age: 64 Year
  Sex: Male

DRUGS (7)
  1. ATORVASTATIN CALCIUM [Suspect]
     Indication: DYSLIPIDAEMIA
     Dosage: 40 MG (DAILY), ORAL
     Route: 048
     Dates: start: 20021201
  2. ACETYLSALICYLIC ACID SRT [Concomitant]
  3. ISOSORBIDE MONONITRATE [Concomitant]
  4. METOPROLOL SUCCINATE [Concomitant]
  5. ALL OTHER THERAPEUTIC PRODUCTS [Concomitant]
  6. AMLILORIDE W/HYDROCHLOROTHIAZIDE (HYROCHOLOROTHIAZIDE, AMILORIDE) [Concomitant]
  7. METOPROLOL (METOPROLOL) [Concomitant]

REACTIONS (6)
  - CHEST PAIN [None]
  - CORONARY ARTERY OCCLUSION [None]
  - ECHOCARDIOGRAM ABNORMAL [None]
  - MEDICAL DEVICE COMPLICATION [None]
  - VASCULAR OCCLUSION [None]
  - VEIN DISORDER [None]
